FAERS Safety Report 6318217-8 (Version None)
Quarter: 2009Q3

REPORT INFORMATION
  Report Type: 
  Country: None (occurrence: None)
  Receive Date: 20090821
  Receipt Date: 20090817
  Transmission Date: 20100115
  Serious: Yes (Hospitalization)
  Sender: FDA-Public Use
  Company Number: D0062275A

PATIENT
  Sex: Female
  Weight: 85 kg

DRUGS (9)
  1. ARIXTRA [Suspect]
     Indication: THROMBOSIS PROPHYLAXIS
     Route: 058
     Dates: start: 20090622, end: 20090709
  2. RISPERDAL [Concomitant]
     Dosage: 1MG PER DAY
     Route: 065
     Dates: start: 20090617
  3. MEMANTINE [Concomitant]
     Dosage: 5MG IN THE MORNING
     Route: 065
     Dates: start: 20090617
  4. COTRIM [Concomitant]
     Route: 065
     Dates: start: 20090617
  5. TAVOR [Concomitant]
     Dosage: 1MG PER DAY
     Route: 065
     Dates: start: 20090617
  6. VITAMIN B-12 [Concomitant]
     Route: 048
     Dates: start: 20090617
  7. DELTAJONIN [Concomitant]
     Route: 042
  8. GLUCOSE [Concomitant]
     Route: 042
  9. NOVALGIN [Concomitant]
     Dosage: 30ML FOUR TIMES PER DAY
     Route: 048
     Dates: end: 20090622

REACTIONS (5)
  - BLADDER TAMPONADE [None]
  - CYSTITIS HAEMORRHAGIC [None]
  - HAEMATOMA [None]
  - HAEMORRHAGIC DIATHESIS [None]
  - PROTHROMBIN TIME PROLONGED [None]
